FAERS Safety Report 7593284-2 (Version None)
Quarter: 2011Q3

REPORT INFORMATION
  Report Type: 
  Country: None (occurrence: None)
  Receive Date: 20110706
  Receipt Date: 20110627
  Transmission Date: 20111222
  Serious: Yes (Death, Life-Threatening, Hospitalization)
  Sender: FDA-Public Use
  Company Number: IT-CELGENEUS-083-50794-11051621

PATIENT
  Sex: Male

DRUGS (4)
  1. MITTOVAL [Concomitant]
     Route: 065
  2. VIDAZA [Suspect]
  3. DEPAKENE [Concomitant]
     Route: 065
     Dates: start: 20101227, end: 20110103
  4. VIDAZA [Suspect]
     Dosage: 143 MILLIGRAM
     Route: 050
     Dates: start: 20101227, end: 20110103

REACTIONS (2)
  - ACUTE MYELOID LEUKAEMIA [None]
  - LUNG INFECTION [None]
